FAERS Safety Report 14656263 (Version 1)
Quarter: 2018Q1

REPORT INFORMATION
  Report Type: Spontaneous
  Country: NL (occurrence: NL)
  Receive Date: 20180319
  Receipt Date: 20180319
  Transmission Date: 20180509
  Serious: Yes (Other)
  Sender: FDA-Public Use
  Company Number: NL-PFIZER INC-2018104496

PATIENT
  Sex: Male

DRUGS (1)
  1. DOXAZOSIN MESILATE [Suspect]
     Active Substance: DOXAZOSIN MESYLATE

REACTIONS (1)
  - Anaphylactic shock [Unknown]
